FAERS Safety Report 19828113 (Version 1)
Quarter: 2021Q3

REPORT INFORMATION
  Report Type: Spontaneous
  Country: DE (occurrence: DE)
  Receive Date: 20210914
  Receipt Date: 20210914
  Transmission Date: 20211014
  Serious: Yes (Hospitalization, Other)
  Sender: FDA-Public Use
  Company Number: DE-TEVA-2021-DE-1951478

PATIENT
  Age: 83 Year
  Sex: Male

DRUGS (3)
  1. DACARBAZIN [Suspect]
     Active Substance: DACARBAZINE
     Dosage: ACCORDING TO THE SCHEME
     Route: 065
  2. DOXORUBICIN [Suspect]
     Active Substance: DOXORUBICIN
     Dosage: ACCORDING TO THE SCHEME
     Route: 065
  3. VINBLASTIN [Suspect]
     Active Substance: VINBLASTINE
     Dosage: ACCORDING TO THE SCHEME
     Route: 065

REACTIONS (6)
  - Leukocytosis [Unknown]
  - Fatigue [Unknown]
  - Dysuria [Unknown]
  - Urosepsis [Unknown]
  - Pyrexia [Unknown]
  - Pain [Unknown]
